FAERS Safety Report 7510338-7 (Version None)
Quarter: 2011Q2

REPORT INFORMATION
  Report Type: 
  Country: None (occurrence: None)
  Receive Date: 20110527
  Receipt Date: 20110523
  Transmission Date: 20111010
  Serious: Yes (Hospitalization, Other)
  Sender: FDA-Public Use
  Company Number: PHHO2011US07702

PATIENT
  Sex: Female

DRUGS (8)
  1. HYDROCHLOROTHIAZIDE [Concomitant]
  2. RAD001 [Suspect]
     Indication: COLORECTAL CANCER METASTATIC
     Dosage: 5 MG, QD
     Route: 048
     Dates: start: 20110303, end: 20110309
  3. ERBITUX [Suspect]
     Indication: COLORECTAL CANCER METASTATIC
     Dosage: 736 MG, (DAYS 1, 8, 15)
     Route: 042
     Dates: start: 20110303, end: 20110310
  4. LISINOPRIL [Concomitant]
  5. FENTANYL [Concomitant]
  6. IRINOTECAN HYDROCHLORIDE [Suspect]
     Indication: COLORECTAL CANCER METASTATIC
     Dosage: 230 MG, (DAYS 1, 8)
     Route: 042
     Dates: start: 20110303, end: 20110310
  7. NORVASC [Concomitant]
  8. AMARYL [Concomitant]

REACTIONS (4)
  - FEBRILE NEUTROPENIA [None]
  - PYREXIA [None]
  - ANAEMIA [None]
  - HYPOKALAEMIA [None]
